FAERS Safety Report 4538768-6 (Version None)
Quarter: 2004Q4

REPORT INFORMATION
  Report Type: 
  Country: None (occurrence: None)
  Receive Date: 20041222
  Receipt Date: 20041217
  Transmission Date: 20050328
  Serious: Yes (Other)
  Sender: FDA-Public Use
  Company Number: KII-2004-0014291

PATIENT
  Age: 1 Year
  Sex: Female

DRUGS (1)
  1. OXYCONTIN [Suspect]
     Dosage: ORAL
     Route: 048

REACTIONS (9)
  - ACCIDENTAL EXPOSURE [None]
  - BLOOD PRESSURE DIASTOLIC DECREASED [None]
  - BODY TEMPERATURE INCREASED [None]
  - DEPRESSED LEVEL OF CONSCIOUSNESS [None]
  - HEART RATE INCREASED [None]
  - OXYGEN SATURATION DECREASED [None]
  - RESPIRATORY RATE DECREASED [None]
  - SOMNOLENCE [None]
  - WHEEZING [None]
